FAERS Safety Report 18119505 (Version 1)
Quarter: 2020Q3

REPORT INFORMATION
  Report Type: Other
  Country: CN (occurrence: CN)
  Receive Date: 20200806
  Receipt Date: 20200806
  Transmission Date: 20201103
  Serious: Yes (Other)
  Sender: FDA-Public Use
  Company Number: CN-ROCHE-2654659

PATIENT

DRUGS (6)
  1. CARBOPLATIN. [Suspect]
     Active Substance: CARBOPLATIN
     Indication: HER2 POSITIVE BREAST CANCER
     Dosage: AUC=5
     Route: 065
  2. TROPISETRON [Concomitant]
     Active Substance: TROPISETRON
     Route: 042
  3. TRASTUZUMAB. [Suspect]
     Active Substance: TRASTUZUMAB
     Indication: HER2 POSITIVE BREAST CANCER
     Dosage: FIRST DOSE
     Route: 042
  4. DOCETAXEL. [Suspect]
     Active Substance: DOCETAXEL
     Indication: HER2 POSITIVE BREAST CANCER
     Route: 065
  5. TRASTUZUMAB. [Suspect]
     Active Substance: TRASTUZUMAB
     Dosage: ON DAY 1?21
     Route: 042
  6. DEXAMETHASONE. [Concomitant]
     Active Substance: DEXAMETHASONE
     Indication: ANTIALLERGIC THERAPY

REACTIONS (9)
  - Diarrhoea [Unknown]
  - Neuropathy peripheral [Unknown]
  - Nausea [Unknown]
  - Arrhythmia [Unknown]
  - Vomiting [Unknown]
  - White blood cell count decreased [Unknown]
  - Hepatic function abnormal [Unknown]
  - Musculoskeletal pain [Unknown]
  - Alopecia [Unknown]
